FAERS Safety Report 7248558-1 (Version None)
Quarter: 2011Q1

REPORT INFORMATION
  Report Type: 
  Country: None (occurrence: None)
  Receive Date: 20110128
  Receipt Date: 20110126
  Transmission Date: 20110831
  Serious: Yes (Death)
  Sender: FDA-Public Use
  Company Number: US-ASTRAZENECA-2007UW01144

PATIENT
  Age: 18059 Day
  Sex: Male
  Weight: 147 kg

DRUGS (43)
  1. SEROQUEL [Suspect]
     Indication: MENTAL DISORDER
     Route: 048
     Dates: start: 20001005, end: 20011006
  2. SEROQUEL [Suspect]
     Route: 048
     Dates: start: 20011023
  3. SEROQUEL [Suspect]
     Route: 048
     Dates: start: 20030210, end: 20040211
  4. SEROQUEL [Suspect]
     Indication: PARANOIA
     Route: 048
     Dates: start: 20001005, end: 20011006
  5. SEROQUEL [Suspect]
     Indication: THINKING ABNORMAL
     Route: 048
     Dates: start: 20001005, end: 20011006
  6. SEROQUEL [Suspect]
     Route: 048
     Dates: start: 20011221, end: 20040101
  7. SEROQUEL [Suspect]
     Route: 048
     Dates: start: 20011221, end: 20040101
  8. SEROQUEL [Suspect]
     Route: 048
     Dates: start: 20030210, end: 20040211
  9. SEROQUEL [Suspect]
     Dosage: 300 MG TWO TAB AT BEDTIME
     Route: 048
     Dates: start: 20040713, end: 20050714
  10. RISPERDAL [Concomitant]
     Indication: PARANOIA
     Route: 048
     Dates: start: 20001005, end: 20011006
  11. SEROQUEL [Suspect]
     Route: 048
     Dates: start: 20011221, end: 20040101
  12. SEROQUEL [Suspect]
     Route: 048
     Dates: start: 20011221, end: 20040101
  13. SEROQUEL [Suspect]
     Route: 048
     Dates: start: 20030210, end: 20040211
  14. SEROQUEL [Suspect]
     Route: 048
     Dates: start: 20030210, end: 20040211
  15. SEROQUEL [Suspect]
     Dosage: 300 MG TWO TAB AT BEDTIME
     Route: 048
     Dates: start: 20040713, end: 20050714
  16. SEROQUEL [Suspect]
     Route: 048
     Dates: start: 20011221, end: 20040101
  17. SEROQUEL [Suspect]
     Route: 048
     Dates: start: 20030210, end: 20040211
  18. SEROQUEL [Suspect]
     Dosage: 300 MG TWO TAB AT BEDTIME
     Route: 048
     Dates: start: 20040713, end: 20050714
  19. SEROQUEL [Suspect]
     Dosage: 300 MG TWO TAB AT BEDTIME
     Route: 048
     Dates: start: 20040713, end: 20050714
  20. HALDOL [Concomitant]
     Dates: start: 19790101
  21. SEROQUEL [Suspect]
     Indication: PSYCHOTIC DISORDER
     Route: 048
     Dates: start: 20001005, end: 20011006
  22. SEROQUEL [Suspect]
     Route: 048
     Dates: start: 20011023
  23. SEROQUEL [Suspect]
     Route: 048
     Dates: start: 20011221, end: 20040101
  24. SEROQUEL [Suspect]
     Route: 048
     Dates: start: 20011221, end: 20040101
  25. SEROQUEL [Suspect]
     Route: 048
     Dates: start: 20030210, end: 20040211
  26. ABILIFY [Concomitant]
  27. SEROQUEL [Suspect]
     Indication: SCHIZOPHRENIA
     Route: 048
     Dates: start: 20001005, end: 20011006
  28. SEROQUEL [Suspect]
     Route: 048
     Dates: start: 20011023
  29. SEROQUEL [Suspect]
     Route: 048
     Dates: start: 20030210, end: 20040211
  30. THORAZINE [Concomitant]
  31. TRILAFON [Concomitant]
  32. SEROQUEL [Suspect]
     Indication: NERVOUSNESS
     Route: 048
     Dates: start: 20001005, end: 20011006
  33. SEROQUEL [Suspect]
     Indication: ANXIETY
     Route: 048
     Dates: start: 20001005, end: 20011006
  34. SEROQUEL [Suspect]
     Route: 048
     Dates: start: 20011023
  35. SEROQUEL [Suspect]
     Route: 048
     Dates: start: 20011023
  36. SEROQUEL [Suspect]
     Dosage: 300 MG TWO TAB AT BEDTIME
     Route: 048
     Dates: start: 20040713, end: 20050714
  37. SEROQUEL [Suspect]
     Dosage: 300 MG TWO TAB AT BEDTIME
     Route: 048
     Dates: start: 20040713, end: 20050714
  38. SEROQUEL [Suspect]
     Dosage: 300 MG TWO TAB AT BEDTIME
     Route: 048
     Dates: start: 20040713, end: 20050714
  39. LANSOPRAZOLE [Concomitant]
     Indication: GASTROOESOPHAGEAL REFLUX DISEASE
     Route: 048
     Dates: start: 20001020, end: 20011021
  40. SEROQUEL [Suspect]
     Route: 048
     Dates: start: 20011023
  41. SEROQUEL [Suspect]
     Route: 048
     Dates: start: 20011023
  42. NAVANE [Concomitant]
  43. TRIAVIL [Concomitant]

REACTIONS (2)
  - TYPE 2 DIABETES MELLITUS [None]
  - DEATH [None]
